FAERS Safety Report 8222786-0 (Version None)
Quarter: 2012Q1

REPORT INFORMATION
  Report Type: 
  Country: None (occurrence: None)
  Receive Date: 20120320
  Receipt Date: 20120307
  Transmission Date: 20120608
  Serious: No
  Sender: FDA-Public Use
  Company Number: US-B.I. PHARMACEUTICALS,INC./RIDGEFIELD-2012-BP-02654BP

PATIENT
  Sex: Female

DRUGS (6)
  1. ENALAPRIL [Concomitant]
  2. REFRESH PLUS [Concomitant]
  3. PREVERVISION AREDS [Concomitant]
  4. SPIRIVA [Suspect]
     Indication: CHRONIC OBSTRUCTIVE PULMONARY DISEASE
     Dosage: 18 MCG
     Route: 055
     Dates: start: 20090101
  5. SYNTHROID [Concomitant]
  6. SYMBICORT [Concomitant]

REACTIONS (1)
  - MACULAR DEGENERATION [None]
